FAERS Safety Report 19250757 (Version 1)
Quarter: 2021Q2

REPORT INFORMATION
  Report Type: Spontaneous
  Country: US (occurrence: US)
  Receive Date: 20210513
  Receipt Date: 20210513
  Transmission Date: 20210717
  Serious: No
  Sender: FDA-Public Use
  Company Number: US-TEVA-2021-US-1905633

PATIENT
  Age: 32 Year
  Sex: Female

DRUGS (1)
  1. LORAZEPAM TEVA [Suspect]
     Active Substance: LORAZEPAM
     Indication: PANIC ATTACK
     Route: 065

REACTIONS (2)
  - Drug ineffective [Unknown]
  - Product physical issue [Unknown]

NARRATIVE: CASE EVENT DATE: 2021
